FAERS Safety Report 4639234-X (Version None)
Quarter: 2005Q2

REPORT INFORMATION
  Report Type: 
  Country: None (occurrence: None)
  Receive Date: 20050418
  Receipt Date: 20050404
  Transmission Date: 20051028
  Serious: Yes (Hospitalization)
  Sender: FDA-Public Use
  Company Number: 2004-122288-NL

PATIENT
  Age: 31 Year
  Sex: Female

DRUGS (10)
  1. MENOTROPINS [Suspect]
     Dosage: 300 IU INTRAMUSCULAR
     Route: 030
     Dates: start: 20030924, end: 20030928
  2. UROFOLLITROPIN [Suspect]
     Dosage: 225 IU INTRAMUSCULAR
     Route: 030
     Dates: start: 20030920, end: 20030923
  3. CHORIONIC GONADOTROPIN [Suspect]
     Dosage: 5000 IU/1500 IU/1500 IU INTRAMUSCULAR
     Route: 030
     Dates: start: 20030929, end: 20030929
  4. CHORIONIC GONADOTROPIN [Suspect]
     Dosage: 5000 IU/1500 IU/1500 IU INTRAMUSCULAR
     Route: 030
     Dates: start: 20031003, end: 20031003
  5. CHORIONIC GONADOTROPIN [Suspect]
     Dosage: 5000 IU/1500 IU/1500 IU INTRAMUSCULAR
     Route: 030
     Dates: start: 20031006, end: 20031006
  6. PENTAZOCINE LACTATE [Concomitant]
  7. ATROPINE SULFATE [Concomitant]
  8. DIAZEPAM [Concomitant]
  9. KETAMINE HCL [Concomitant]
  10. CEFDINIR [Concomitant]

REACTIONS (6)
  - BLOOD ALBUMIN DECREASED [None]
  - HAEMATOCRIT DECREASED [None]
  - HAEMOGLOBIN DECREASED [None]
  - OVARIAN HYPERSTIMULATION SYNDROME [None]
  - PROTEIN TOTAL DECREASED [None]
  - VULVAL OEDEMA [None]
